FAERS Safety Report 20329114 (Version 2)
Quarter: 2022Q1

REPORT INFORMATION
  Report Type: Spontaneous
  Country: US (occurrence: US)
  Receive Date: 20220112
  Receipt Date: 20220323
  Transmission Date: 20220424
  Serious: No
  Sender: FDA-Public Use
  Company Number: US-PFIZER INC-202101383622

PATIENT
  Age: 57 Year
  Sex: Female

DRUGS (2)
  1. IBRANCE [Suspect]
     Active Substance: PALBOCICLIB
     Dosage: 125 -MG, CYCLIC (DAILY FOR 21 CONSECUTIVE DAYS, FOLLOWED BY 7 DAYS OFF TREATMENT FOR A 28 DAY CYCLE)
     Route: 048
     Dates: start: 20210923
  2. FULVESTRANT [Suspect]
     Active Substance: FULVESTRANT
     Dosage: UNK
     Route: 051

REACTIONS (4)
  - Disease progression [Unknown]
  - Swelling face [Unknown]
  - Urticaria [Unknown]
  - Chemical peel of skin [Unknown]

NARRATIVE: CASE EVENT DATE: 20210101
